FAERS Safety Report 9054830 (Version 1)
Quarter: 2013Q1

REPORT INFORMATION
  Report Type: Spontaneous
  Country: FR (occurrence: FR)
  Receive Date: 20130208
  Receipt Date: 20130208
  Transmission Date: 20140127
  Serious: Yes (Other)
  Sender: FDA-Public Use
  Company Number: FR-JNJFOC-20130202833

PATIENT
  Age: 79 Year
  Sex: Female

DRUGS (4)
  1. XARELTO [Suspect]
     Indication: CEREBROVASCULAR ACCIDENT PROPHYLAXIS
     Route: 048
  2. XARELTO [Suspect]
     Indication: ATRIAL FIBRILLATION
     Route: 048
  3. HEMIGOXINE [Concomitant]
     Route: 065
  4. CORDARONE [Concomitant]
     Route: 065

REACTIONS (3)
  - Haematoma [Recovering/Resolving]
  - Chest pain [Unknown]
  - Paraesthesia [Unknown]
